FAERS Safety Report 8429311 (Version 12)
Quarter: 2013Q1

REPORT INFORMATION
  Report Type: Spontaneous
  Country: JP (occurrence: JP)
  Receive Date: 20120227
  Receipt Date: 20130130
  Transmission Date: 20140127
  Serious: Yes (Hospitalization, Other)
  Sender: FDA-Public Use
  Company Number: PHHY2012JP013916

PATIENT
  Sex: 0
  Weight: 61 kg

DRUGS (22)
  1. PARIET [Concomitant]
     Indication: MULTIPLE SCLEROSIS
     Dosage: 10 MG, UNK
     Route: 048
     Dates: start: 20111125
  2. CERCINE [Concomitant]
     Indication: MULTIPLE SCLEROSIS
     Dosage: 2 MG, UNK
     Route: 048
     Dates: start: 20110819
  3. DOPACOL [Concomitant]
     Dosage: 100 MG, UNK
     Route: 048
  4. ALLEGRA [Concomitant]
     Indication: DERMATITIS ATOPIC
     Dosage: 120 MG, UNK
     Route: 048
  5. WARKMIN [Concomitant]
     Indication: OSTEOPOROSIS
     Dosage: 0.25 UG, UNK
     Route: 048
  6. REBAMIPIDE [Concomitant]
     Dosage: 200 MG, UNK
     Route: 048
  7. MAGMITT [Concomitant]
     Dosage: 1320 MG, UNK
     Route: 048
  8. ASPARA-CA [Concomitant]
     Dosage: 200 MG, UNK
     Route: 048
  9. METHYCOBAL [Concomitant]
     Dosage: 500 MG, UNK
     Route: 048
  10. PURSENNID [Concomitant]
     Dosage: 2 DF, UNK
     Route: 048
  11. RISUMIC [Concomitant]
     Indication: MULTIPLE SCLEROSIS
     Dosage: 15 MG, UNK
     Route: 048
     Dates: start: 20111111
  12. WARFARIN POTASSIUM [Concomitant]
     Indication: OEDEMA PERIPHERAL
     Dosage: 1 MG, UNK
     Route: 048
     Dates: start: 20111220, end: 20120224
  13. SOLU-MEDROL [Concomitant]
     Indication: MULTIPLE SCLEROSIS
     Dosage: 1000 MG, UNK
     Dates: start: 20110705, end: 20120112
  14. IMURAN [Concomitant]
     Indication: MULTIPLE SCLEROSIS
     Dosage: 100 MG, UNK
     Route: 048
     Dates: start: 20110706, end: 20110810
  15. EBRANTIL [Concomitant]
     Indication: MULTIPLE SCLEROSIS
     Dosage: 30 MG, UNK
     Route: 048
     Dates: start: 20111202
  16. LANDSEN [Concomitant]
     Indication: MULTIPLE SCLEROSIS
     Dosage: 1 MG, UNK
     Route: 048
     Dates: start: 20110818
  17. MENESIT [Concomitant]
     Indication: MULTIPLE SCLEROSIS
     Dosage: 400 MG, UNK
     Route: 048
  18. OLMETEC [Concomitant]
     Indication: HYPERTENSION
     Dosage: 20 MG, UNK
     Route: 048
     Dates: start: 20110922
  19. WARFARIN [Concomitant]
     Indication: MULTIPLE SCLEROSIS
     Dosage: 1 MG, UNK
     Route: 048
     Dates: start: 20111220, end: 20120224
  20. GILENYA [Suspect]
     Indication: MULTIPLE SCLEROSIS
     Dosage: 0.5 MG, QD
     Route: 048
     Dates: start: 20120117, end: 20120214
  21. LIPITOR [Concomitant]
     Indication: DYSLIPIDAEMIA
     Dosage: 5 MG, UNK
     Route: 048
     Dates: start: 20111220
  22. LIORESAL [Concomitant]
     Indication: MULTIPLE SCLEROSIS
     Dosage: 30 MG, UNK
     Route: 048
     Dates: start: 20111220

REACTIONS (6)
  - Retinal haemorrhage [Recovered/Resolved]
  - Macular oedema [Recovered/Resolved]
  - Visual acuity reduced [Recovered/Resolved]
  - Multiple sclerosis relapse [Not Recovered/Not Resolved]
  - White blood cell count decreased [Unknown]
  - Lymphocyte count decreased [Unknown]
